FAERS Safety Report 7934481-3 (Version None)
Quarter: 2011Q4

REPORT INFORMATION
  Report Type: 
  Country: None (occurrence: None)
  Receive Date: 20111122
  Receipt Date: 20111116
  Transmission Date: 20120403
  Serious: Yes (Other)
  Sender: FDA-Public Use
  Company Number: FR-GLAXOSMITHKLINE-B0763323A

PATIENT
  Age: 41 Year
  Sex: Male

DRUGS (4)
  1. PAROXETINE HCL [Suspect]
     Indication: NERVOUSNESS
     Dosage: 20MG PER DAY
     Route: 048
     Dates: start: 20111026, end: 20111030
  2. DEDROGYL [Concomitant]
     Indication: VITAMIN D DEFICIENCY
     Route: 065
  3. CIPROFLOXACIN [Concomitant]
     Indication: URINARY TRACT INFECTION
     Route: 065
  4. TIAPRIDAL [Concomitant]
     Indication: NERVOUSNESS
     Route: 065

REACTIONS (10)
  - DYSURIA [None]
  - NAUSEA [None]
  - DIZZINESS [None]
  - SEXUAL DYSFUNCTION [None]
  - VISUAL IMPAIRMENT [None]
  - HYPERHIDROSIS [None]
  - HALLUCINATION [None]
  - SLEEP DISORDER [None]
  - ABNORMAL DREAMS [None]
  - PALPITATIONS [None]
